FAERS Safety Report 26111018 (Version 1)
Quarter: 2025Q4

REPORT INFORMATION
  Report Type: Spontaneous
  Country: EU (occurrence: None)
  Receive Date: 20251202
  Receipt Date: 20251202
  Transmission Date: 20260118
  Serious: Yes (Other)
  Sender: ORGANON
  Company Number: None

PATIENT
  Age: 71 Year
  Sex: Female

DRUGS (4)
  1. BETAMETHASONE ACETATE\BETAMETHASONE SODIUM PHOSPHATE [Suspect]
     Active Substance: BETAMETHASONE ACETATE\BETAMETHASONE SODIUM PHOSPHATE
     Indication: Greater trochanteric pain syndrome
     Dosage: 2 MILLILITER, ONCE (1 VIAL OF 2 ML)
     Dates: start: 20251002, end: 20251002
  2. MEPIVACAINE (1909A) [Concomitant]
     Indication: Greater trochanteric pain syndrome
     Dosage: UNK
     Dates: start: 20251002, end: 20251002
  3. SYMBICORT 160 MICROGRAMS/4.5 MICROGRAMS/INHALATION SUSPENSION FOR INHA [Concomitant]
     Dosage: 1 DOSAGE FORM, Q12H (IN PRESSURE CONTAINER, 1 X 120-DOSE INHALER)
  4. HYDROFEROL 0.266 MG SOFTGELS, 10 capsules (Blister PVC/PVDC-ALUMINUM) [Concomitant]
     Dosage: 0.26 MILLIGRAM, QM (SOFT GELS, 10 CAPSULES (BLISTER PVC/PVDC-ALUMINUM)

REACTIONS (2)
  - Headache [Recovered/Resolved]
  - Vomiting [Recovered/Resolved]

NARRATIVE: CASE EVENT DATE: 20251002
